FAERS Safety Report 21036006 (Version 1)
Quarter: 2022Q3

REPORT INFORMATION
  Report Type: Spontaneous
  Country: US (occurrence: US)
  Receive Date: 20220701
  Receipt Date: 20220701
  Transmission Date: 20221027
  Serious: No
  Sender: FDA-Public Use
  Company Number: US-KRAMERLABS-2021-US-015344

PATIENT
  Age: 82 Year
  Sex: Female
  Weight: 70.31 kg

DRUGS (5)
  1. NIZORAL A-D [Suspect]
     Active Substance: KETOCONAZOLE
     Indication: Fungal skin infection
     Dosage: USED 4 TIMES LEAVING 4 TO 5 DAYS BETWEEN USES
     Route: 061
     Dates: start: 202106, end: 20210710
  2. METFORMIN [Concomitant]
     Active Substance: METFORMIN HYDROCHLORIDE
  3. QUINAPRIL [Concomitant]
     Active Substance: QUINAPRIL
  4. Diuretic (non-specific) [Concomitant]
  5. Supplements (non-specific) [Concomitant]

REACTIONS (4)
  - Hair texture abnormal [Unknown]
  - Intentional product misuse [Recovered/Resolved]
  - Off label use [Recovered/Resolved]
  - Therapeutic response unexpected [Recovered/Resolved]

NARRATIVE: CASE EVENT DATE: 20210601
